FAERS Safety Report 5813487-4 (Version None)
Quarter: 2008Q3

REPORT INFORMATION
  Report Type: 
  Country: None (occurrence: None)
  Receive Date: 20080716
  Receipt Date: 20080716
  Transmission Date: 20090109
  Serious: No
  Sender: FDA-Public Use
  Company Number: None

PATIENT
  Age: 78 Year
  Sex: Male
  Weight: 94.8 kg

DRUGS (1)
  1. LISINOPRIL [Suspect]
     Indication: HYPERTENSION
     Dosage: 40 MG EVERY DAY PO
     Route: 048
     Dates: start: 19990414, end: 20080701

REACTIONS (4)
  - ANGIOEDEMA [None]
  - DYSPHAGIA [None]
  - SPEECH DISORDER [None]
  - VIRAL PHARYNGITIS [None]
